FAERS Safety Report 14057189 (Version 1)
Quarter: 2017Q4

REPORT INFORMATION
  Report Type: Spontaneous
  Country: JP (occurrence: JP)
  Receive Date: 20171006
  Receipt Date: 20171006
  Transmission Date: 20180321
  Serious: Yes (Life-Threatening, Disabling, Other)
  Sender: FDA-Public Use
  Company Number: JP-JNJFOC-20170826496

PATIENT
  Age: 65 Year
  Sex: Male
  Weight: 60.8 kg

DRUGS (10)
  1. AZILSARTAN [Concomitant]
     Active Substance: AZILSARTAN KAMEDOXOMIL
     Indication: HYPERTENSION
     Dosage: DAILY DOSE 120 MG
     Route: 048
     Dates: start: 20170724
  2. LEVETIRACETAM. [Concomitant]
     Active Substance: LEVETIRACETAM
     Indication: CONVULSION PROPHYLAXIS
     Dosage: DAILY DOSE 500 MG
     Route: 065
     Dates: start: 20170720, end: 20170721
  3. LOXOPROFEN [Concomitant]
     Active Substance: LOXOPROFEN
     Dosage: DAILY DOSE 120 MG
     Route: 048
  4. FAMOTIDINE. [Concomitant]
     Active Substance: FAMOTIDINE
     Indication: UPPER GASTROINTESTINAL HAEMORRHAGE
     Dosage: DAILY DOSE 20 MG
     Route: 065
     Dates: start: 20170720, end: 20170721
  5. GLYCEREB [Concomitant]
     Indication: INTRAOPERATIVE CARE
     Dosage: DAILY DOSE 200 MG
     Route: 065
     Dates: start: 20170719, end: 20170719
  6. FEBUXOSTAT. [Concomitant]
     Active Substance: FEBUXOSTAT
     Indication: HYPERURICAEMIA
     Dosage: DAILY DOSE 20 MG
     Route: 048
  7. CEFAZOLIN SODIUM. [Concomitant]
     Active Substance: CEFAZOLIN SODIUM
     Indication: INFECTION PROPHYLAXIS
     Dosage: DAILY DOSE 1G
     Route: 065
     Dates: start: 20170719, end: 20170721
  8. AMLODIPINE [Concomitant]
     Active Substance: AMLODIPINE BESYLATE
     Indication: HYPERTENSION
     Dosage: DAILY DOSE 5 MG
     Route: 048
  9. METOCLOPRAMIDE. [Concomitant]
     Active Substance: METOCLOPRAMIDE
     Indication: NAUSEA
     Dosage: DAILY DOSE 10 MG
     Route: 065
     Dates: start: 20170719, end: 20170719
  10. XARELTO [Suspect]
     Active Substance: RIVAROXABAN
     Indication: ATRIAL FIBRILLATION
     Route: 048
     Dates: end: 20170729

REACTIONS (4)
  - Monoplegia [Unknown]
  - Neurologic neglect syndrome [Unknown]
  - Cerebral haemorrhage [Recovered/Resolved with Sequelae]
  - Hemiasomatognosia [Unknown]

NARRATIVE: CASE EVENT DATE: 20170719
